FAERS Safety Report 20643709 (Version 1)
Quarter: 2022Q1

REPORT INFORMATION
  Report Type: Spontaneous
  Country: CN (occurrence: CN)
  Receive Date: 20220328
  Receipt Date: 20220328
  Transmission Date: 20220424
  Serious: Yes (Hospitalization)
  Sender: FDA-Public Use
  Company Number: CN-SA-SAC20220322000143

PATIENT
  Age: 59 Year
  Sex: Male

DRUGS (3)
  1. LANTUS [Suspect]
     Active Substance: INSULIN GLARGINE
     Indication: Diabetes mellitus
     Dosage: 10 IU, QD
     Route: 058
     Dates: start: 20220308, end: 20220310
  2. LANTUS [Suspect]
     Active Substance: INSULIN GLARGINE
     Dosage: 4 IU, TID
     Route: 058
  3. INSULIN LISPRO [Suspect]
     Active Substance: INSULIN LISPRO
     Indication: Diabetes mellitus
     Dosage: 4 IU, Q8H
     Route: 058
     Dates: start: 20220308, end: 20220311

REACTIONS (4)
  - Dizziness [Recovering/Resolving]
  - Asthenia [Recovering/Resolving]
  - Cold sweat [Recovering/Resolving]
  - Hypoglycaemia [Recovering/Resolving]

NARRATIVE: CASE EVENT DATE: 20220310
